FAERS Safety Report 20291084 (Version 4)
Quarter: 2022Q1

REPORT INFORMATION
  Report Type: Spontaneous
  Country: DE (occurrence: DE)
  Receive Date: 20220104
  Receipt Date: 20220315
  Transmission Date: 20220423
  Serious: Yes (Hospitalization)
  Sender: FDA-Public Use
  Company Number: DE-PFIZER INC-202101795552

PATIENT
  Age: 49 Year
  Sex: Female

DRUGS (2)
  1. DICLOFENAC SODIUM [Suspect]
     Active Substance: DICLOFENAC SODIUM
     Indication: Back pain
     Dosage: 75 MG SYRINGE
     Route: 065
     Dates: start: 20211202
  2. DEXAMETHASONE [Suspect]
     Active Substance: DEXAMETHASONE
     Indication: Back pain
     Dosage: 8 MG SYRINGE
     Route: 065
     Dates: start: 20211202

REACTIONS (10)
  - Hypertension [Recovering/Resolving]
  - Pulse abnormal [Unknown]
  - Palpitations [Recovering/Resolving]
  - Muscular weakness [Not Recovered/Not Resolved]
  - Gait disturbance [Not Recovered/Not Resolved]
  - Dizziness [Not Recovered/Not Resolved]
  - Restlessness [Not Recovered/Not Resolved]
  - Paraesthesia [Not Recovered/Not Resolved]
  - Tachycardia [Recovering/Resolving]
  - Fatigue [Recovering/Resolving]
